FAERS Safety Report 8078808-3 (Version None)
Quarter: 2012Q1

REPORT INFORMATION
  Report Type: 
  Country: None (occurrence: None)
  Receive Date: 20120124
  Receipt Date: 20120113
  Transmission Date: 20120608
  Serious: Yes (Other)
  Sender: FDA-Public Use
  Company Number: 2012SP000357

PATIENT
  Age: 60 Year
  Sex: Male

DRUGS (9)
  1. PEG-INTRON [Suspect]
     Indication: PRODUCT USED FOR UNKNOWN INDICATION
     Dosage: 150 MCG
  2. RIBAVIRIN [Suspect]
     Indication: PRODUCT USED FOR UNKNOWN INDICATION
     Dosage: 600 MG
  3. ASPIRIN [Concomitant]
  4. CLOBETASOL [Concomitant]
  5. LISINOPRIL [Concomitant]
  6. VICTRELIS [Suspect]
     Indication: PRODUCT USED FOR UNKNOWN INDICATION
     Dosage: 200 MG;TID;PO
     Route: 048
  7. LANTUS [Concomitant]
  8. NOVOLOG [Concomitant]
  9. HUMALOG [Concomitant]

REACTIONS (6)
  - DYSGEUSIA [None]
  - DRY MOUTH [None]
  - GASTRIC HAEMORRHAGE [None]
  - HAEMOGLOBIN DECREASED [None]
  - DIABETIC COMA [None]
  - NAUSEA [None]
